FAERS Safety Report 15220564 (Version 1)
Quarter: 2018Q3

REPORT INFORMATION
  Report Type: Spontaneous
  Country: SK (occurrence: SK)
  Receive Date: 20180731
  Receipt Date: 20180731
  Transmission Date: 20181010
  Serious: Yes (Other)
  Sender: FDA-Public Use
  Company Number: SK-MYLANLABS-2018M1055320

PATIENT
  Age: 55 Year
  Sex: Female

DRUGS (1)
  1. MESALAZINE [Suspect]
     Active Substance: MESALAMINE
     Indication: COLITIS
     Route: 065

REACTIONS (4)
  - Glomerulosclerosis [Unknown]
  - Tubulointerstitial nephritis [Unknown]
  - Chronic kidney disease [Unknown]
  - Renal transplant [Recovered/Resolved with Sequelae]

NARRATIVE: CASE EVENT DATE: 2004
